FAERS Safety Report 12213379 (Version 1)
Quarter: 2016Q1

REPORT INFORMATION
  Report Type: Spontaneous
  Country: US (occurrence: None)
  Receive Date: 20160325
  Receipt Date: 20160325
  Transmission Date: 20160526
  Serious: Yes (Life-Threatening, Hospitalization, Disabling, Other)
  Sender: FDA-Public Use
  Company Number: None

PATIENT
  Age: 62 Year
  Sex: Female
  Weight: 94.35 kg

DRUGS (16)
  1. VALSARTAN. [Concomitant]
     Active Substance: VALSARTAN
  2. TYLENOL [Concomitant]
     Active Substance: ACETAMINOPHEN
  3. VICTOZA [Suspect]
     Active Substance: LIRAGLUTIDE
     Indication: DIABETES MELLITUS INADEQUATE CONTROL
     Dosage: IN THE MORNING  GIVEN INTO/UNDER THE SKIN
     Dates: start: 20150709, end: 20151001
  4. PANTOPRAZOLE [Concomitant]
     Active Substance: PANTOPRAZOLE SODIUM
  5. CO-Q10 [Concomitant]
  6. AMLODIPINE [Concomitant]
     Active Substance: AMLODIPINE BESYLATE
  7. ROSUVASTATIN [Concomitant]
     Active Substance: ROSUVASTATIN
  8. CLOPIDOGREL [Concomitant]
     Active Substance: CLOPIDOGREL BISULFATE
  9. CPAP [Concomitant]
     Active Substance: DEVICE
  10. RANITIDINE [Concomitant]
     Active Substance: RANITIDINE\RANITIDINE HYDROCHLORIDE
  11. ASPIRIN. [Concomitant]
     Active Substance: ASPIRIN
  12. VICTOZA [Suspect]
     Active Substance: LIRAGLUTIDE
     Indication: GLYCOSYLATED HAEMOGLOBIN INCREASED
     Dosage: IN THE MORNING  GIVEN INTO/UNDER THE SKIN
     Dates: start: 20150709, end: 20151001
  13. INSULIN LISPRO [Concomitant]
     Active Substance: INSULIN LISPRO
  14. VITAMIN C [Concomitant]
     Active Substance: ASCORBIC ACID
  15. GLYBURIDE-METFORMIN [Concomitant]
  16. VITAMIN D [Concomitant]
     Active Substance: CHOLECALCIFEROL

REACTIONS (6)
  - Ventricular tachycardia [None]
  - Cardiac ablation [None]
  - Cardiac perforation [None]
  - Pericardial effusion [None]
  - Weight decreased [None]
  - Arrhythmia [None]

NARRATIVE: CASE EVENT DATE: 20150709
